FAERS Safety Report 21507668 (Version 1)
Quarter: 2022Q4

REPORT INFORMATION
  Report Type: Spontaneous
  Country: US (occurrence: None)
  Receive Date: 20221025
  Receipt Date: 20221025
  Transmission Date: 20230113
  Serious: No
  Sender: FDA-Public Use
  Company Number: None

PATIENT
  Age: 74 Year
  Sex: Male
  Weight: 82.64 kg

DRUGS (10)
  1. SORAFENIB [Suspect]
     Active Substance: SORAFENIB
     Indication: Renal cell carcinoma
     Dosage: 200MG TWICE A DAY ORAL
     Route: 048
  2. EQ ONE DAILY MENTS HEALTH [Concomitant]
  3. MIRTAAPINE MS [Concomitant]
  4. CONTIN NITROSTAT [Concomitant]
  5. OXYCODONE [Concomitant]
  6. PROPRANOLOL [Concomitant]
  7. TRAMADOL [Concomitant]
  8. VITAMIN D [Concomitant]
  9. ASPIRIN [Concomitant]
     Active Substance: ASPIRIN
  10. ATIVAN [Concomitant]
     Active Substance: LORAZEPAM

REACTIONS (2)
  - Hospice care [None]
  - Adverse reaction [None]
